FAERS Safety Report 7878562-1 (Version None)
Quarter: 2011Q4

REPORT INFORMATION
  Report Type: 
  Country: None (occurrence: None)
  Receive Date: 20111014
  Receipt Date: 20110725
  Transmission Date: 20120403
  Serious: Yes (Other)
  Sender: FDA-Public Use
  Company Number: 1000022437

PATIENT
  Age: 75 Year
  Sex: Male

DRUGS (14)
  1. LEXAPRO [Suspect]
     Indication: DEPRESSION
     Dosage: 15 MG (15 MG, 1 IN 1 D), ORAL, 10 MG (10 MG, 1 IN 1 D), ORAL
     Route: 048
  2. LEXAPRO [Suspect]
     Indication: ANXIETY
     Dosage: 15 MG (15 MG, 1 IN 1 D), ORAL, 10 MG (10 MG, 1 IN 1 D), ORAL
     Route: 048
  3. METFORMIN HCL [Concomitant]
  4. METOPROLOL SUCCINATE [Concomitant]
  5. LEXAPRO [Suspect]
     Indication: DEPRESSION
     Dosage: 10 MG (10 MG, 1 IN 1 D), ORAL
     Route: 048
     Dates: start: 20060101
  6. LEXAPRO [Suspect]
     Indication: ANXIETY
     Dosage: 10 MG (10 MG, 1 IN 1 D), ORAL
     Route: 048
     Dates: start: 20060101
  7. CILOSTAZOL (CILOSTAZOL) (CILOSTAZOL) [Concomitant]
  8. ALKA SELTZER (SODIUM BICARBONATE, CITRIC ACID, ASPIRIN) (SODIUM BICARB [Concomitant]
  9. PRILOSEC (OMEPRAZOLE) (OMEPRAZOLE) [Concomitant]
  10. DIOVAN [Concomitant]
  11. LEVOTHYROXINE (LEVOTHYROXINE SODIUM) (LEVOTHYROXINE SODIUM) [Concomitant]
  12. LOSARTAN HYDROCHLOROTHIAZIDE (LOSARTAN, HYDROCHLOROTHIAZIDE) (LOSARTAN [Concomitant]
  13. SIMVASTATIN [Concomitant]
  14. HYDROCODONE (HYDROCODONE) (HYDROCODONE) [Concomitant]

REACTIONS (7)
  - HEADACHE [None]
  - SUICIDAL IDEATION [None]
  - AGGRESSION [None]
  - INSOMNIA [None]
  - MENTAL IMPAIRMENT [None]
  - AMNESIA [None]
  - FOOD CRAVING [None]
